FAERS Safety Report 14858694 (Version 1)
Quarter: 2018Q2

REPORT INFORMATION
  Report Type: Spontaneous
  Country: US (occurrence: US)
  Receive Date: 20180420
  Receipt Date: 20180420
  Transmission Date: 20180711
  Serious: Yes (Life-Threatening, Hospitalization, Disabling)
  Sender: FDA-Public Use
  Company Number: None

PATIENT
  Age: 20 Year
  Sex: Female
  Weight: 60.75 kg

DRUGS (1)
  1. LATUDA [Suspect]
     Active Substance: LURASIDONE HYDROCHLORIDE
     Indication: DEPRESSION
     Route: 048
     Dates: start: 20160801, end: 20161010

REACTIONS (13)
  - Anxiety [None]
  - Tic [None]
  - Tremor [None]
  - Insomnia [None]
  - Condition aggravated [None]
  - Panic disorder [None]
  - Nerve injury [None]
  - Depression [None]
  - Neuroleptic malignant syndrome [None]
  - Affective disorder [None]
  - Suicidal ideation [None]
  - Product quality issue [None]
  - Amnesia [None]

NARRATIVE: CASE EVENT DATE: 20160820
